FAERS Safety Report 6814717-2 (Version None)
Quarter: 2010Q2

REPORT INFORMATION
  Report Type: 
  Country: None (occurrence: None)
  Receive Date: 20100629
  Receipt Date: 20100617
  Transmission Date: 20101027
  Serious: Yes (Death, Hospitalization)
  Sender: FDA-Public Use
  Company Number: FR-GDP-10408176

PATIENT
  Sex: Female

DRUGS (1)
  1. METVIXIA [Suspect]
     Indication: ACTINIC KERATOSIS
     Dosage: (1 DF TOPICAL)
     Route: 061
     Dates: start: 20100301, end: 20100301

REACTIONS (19)
  - ANGIOIMMUNOBLASTIC T-CELL LYMPHOMA [None]
  - BLOOD ALKALINE PHOSPHATASE INCREASED [None]
  - BLOOD CREATINE INCREASED [None]
  - CYANOSIS [None]
  - DERMATITIS EXFOLIATIVE [None]
  - DIARRHOEA [None]
  - DRUG HYPERSENSITIVITY [None]
  - DRUG RASH WITH EOSINOPHILIA AND SYSTEMIC SYMPTOMS [None]
  - DYSPHAGIA [None]
  - DYSPNOEA [None]
  - HAEMOGLOBIN DECREASED [None]
  - HELICOBACTER TEST POSITIVE [None]
  - HERPES OESOPHAGITIS [None]
  - LIVEDO RETICULARIS [None]
  - MOUTH ULCERATION [None]
  - OEDEMA PERIPHERAL [None]
  - OESOPHAGITIS ULCERATIVE [None]
  - RENAL IMPAIRMENT [None]
  - SWELLING FACE [None]
